FAERS Safety Report 9038145 (Version 1)
Quarter: 2013Q1

REPORT INFORMATION
  Report Type: Spontaneous
  Country: US (occurrence: US)
  Receive Date: 20130129
  Receipt Date: 20130129
  Transmission Date: 20140127
  Serious: No
  Sender: FDA-Public Use
  Company Number: US-GLAXOSMITHKLINE-A0966415A

PATIENT
  Sex: Female

DRUGS (1)
  1. WELLBUTRIN XL [Suspect]
     Dosage: 300MGD PER DAY
     Route: 048
     Dates: end: 201201

REACTIONS (3)
  - Derealisation [Not Recovered/Not Resolved]
  - Nausea [Unknown]
  - Headache [Unknown]
